FAERS Safety Report 17688266 (Version 1)
Quarter: 2020Q2

REPORT INFORMATION
  Report Type: Spontaneous
  Country: US (occurrence: US)
  Receive Date: 20200418
  Receipt Date: 20200418
  Transmission Date: 20200714
  Serious: No
  Sender: FDA-Public Use
  Company Number: None

PATIENT
  Age: 64 Year
  Sex: Female

DRUGS (1)
  1. TACROLIMUS CAP 1MG [Suspect]
     Active Substance: TACROLIMUS
     Route: 048
     Dates: start: 201508

REACTIONS (5)
  - Influenza [None]
  - Diarrhoea [None]
  - Dizziness [None]
  - Haematochezia [None]
  - Dyspnoea [None]

NARRATIVE: CASE EVENT DATE: 20200418
